FAERS Safety Report 6437081-X (Version None)
Quarter: 2009Q4

REPORT INFORMATION
  Report Type: 
  Country: None (occurrence: None)
  Receive Date: 20091110
  Receipt Date: 20071214
  Transmission Date: 20100525
  Serious: No
  Sender: FDA-Public Use
  Company Number: AEUSA200700287

PATIENT
  Age: 64 Year
  Sex: Female
  Weight: 76.2043 kg

DRUGS (5)
  1. GAMUNEX [Suspect]
     Indication: IMMUNODEFICIENCY
     Dosage: 13W;IV
     Route: 042
     Dates: start: 20070601
  2. WELLBUTRIN [Concomitant]
  3. VICODIN ES [Concomitant]
  4. TASSALON [Concomitant]
  5. PROTONIX /01263201/ [Concomitant]

REACTIONS (3)
  - DERMATITIS [None]
  - PETECHIAE [None]
  - PRURITUS [None]
